FAERS Safety Report 9577203 (Version 1)
Quarter: 2013Q4

REPORT INFORMATION
  Report Type: Spontaneous
  Country: SE (occurrence: SE)
  Receive Date: 20131001
  Receipt Date: 20131001
  Transmission Date: 20140711
  Serious: Yes (Other)
  Sender: FDA-Public Use
  Company Number: CHPA2013SE014937

PATIENT
  Sex: Female

DRUGS (1)
  1. NICOTINELL GUM [Suspect]
     Dosage: 2 MG, UNK
     Route: 065

REACTIONS (1)
  - Drug dependence [Not Recovered/Not Resolved]
